FAERS Safety Report 4599696-3 (Version None)
Quarter: 2005Q1

REPORT INFORMATION
  Report Type: 
  Country: None (occurrence: None)
  Receive Date: 20050302
  Receipt Date: 20050217
  Transmission Date: 20050727
  Serious: Yes (Hospitalization, Other)
  Sender: FDA-Public Use
  Company Number: HQWYE394717FEB05

PATIENT
  Age: 55 Year
  Sex: Female

DRUGS (2)
  1. OROKEN (CEFIXIME, TABLET) [Suspect]
     Indication: URINARY TRACT INFECTION
     Dosage: 400 MG DAILY
     Route: 048
  2. AMOXICILLIN TRIHYDRATE [Suspect]
     Indication: URINARY TRACT INFECTION
     Dosage: 1 TABLET DAILY
     Route: 048

REACTIONS (6)
  - ANGIONEUROTIC OEDEMA [None]
  - OEDEMA PERIPHERAL [None]
  - PRURITUS [None]
  - RASH GENERALISED [None]
  - SKIN EXFOLIATION [None]
  - SKIN TEST POSITIVE [None]
